FAERS Safety Report 15253894 (Version 1)
Quarter: 2018Q3

REPORT INFORMATION
  Report Type: Report from Study
  Country: TN (occurrence: TN)
  Receive Date: 20180808
  Receipt Date: 20180808
  Transmission Date: 20181010
  Serious: Yes (Hospitalization)
  Sender: FDA-Public Use
  Company Number: TN-ROCHE-1611677

PATIENT
  Age: 39 Year
  Sex: Female
  Weight: 60 kg

DRUGS (26)
  1. PLACEBO [Suspect]
     Active Substance: UNSPECIFIED INGREDIENT
     Indication: RELAPSING-REMITTING MULTIPLE SCLEROSIS
     Dosage: FREQUENCY AS PER PROTOCOL: DUAL INFUSION SEPARATED BY 14 DAYS FOR FIRST CYCLE, THEN ONCE EVERY 24 WE
     Route: 042
     Dates: start: 20120706
  2. CEFIXIME. [Concomitant]
     Active Substance: CEFIXIME
     Route: 048
     Dates: start: 20151020, end: 20151030
  3. PEVARYL [Concomitant]
     Active Substance: ECONAZOLE NITRATE
     Indication: URINARY TRACT INFECTION
     Route: 065
     Dates: start: 20161126
  4. SULFAMETHOXAZOLE [Concomitant]
     Active Substance: SULFAMETHOXAZOLE
     Indication: URINARY TRACT INFECTION
     Route: 065
     Dates: start: 20161215, end: 20161228
  5. CEFOXITIN [Concomitant]
     Active Substance: CEFOXITIN SODIUM
     Indication: URINARY TRACT INFECTION
     Route: 065
     Dates: start: 20180726
  6. CEFOTAXIME [Concomitant]
     Active Substance: CEFOTAXIME SODIUM
     Indication: URINARY TRACT INFECTION
     Route: 042
     Dates: start: 20160303, end: 20160310
  7. OCRELIZUMAB. [Suspect]
     Active Substance: OCRELIZUMAB
     Dosage: FURTHER DOSES ON 26/MAY/2015, 10/NOV/2015, 12/APR/2016, 04/APR/2017, 15/SEP/2017 AND 15/FEB/2018.
     Route: 042
     Dates: start: 20141125
  8. LEVONORGESTREL. [Concomitant]
     Active Substance: LEVONORGESTREL
     Indication: PROPHYLAXIS
     Route: 048
     Dates: start: 20120620
  9. CEFOTAXIME [Concomitant]
     Active Substance: CEFOTAXIME SODIUM
     Route: 042
     Dates: start: 20161031, end: 20161103
  10. CEFOTAXIME [Concomitant]
     Active Substance: CEFOTAXIME SODIUM
     Route: 042
     Dates: start: 20170706, end: 20170707
  11. FLUCONAZOLE. [Concomitant]
     Active Substance: FLUCONAZOLE
     Indication: VULVOVAGINAL CANDIDIASIS
     Route: 065
     Dates: start: 20161126, end: 20161202
  12. FURADOINE [Concomitant]
     Active Substance: NITROFURANTOIN
     Indication: URINARY TRACT INFECTION
     Route: 065
     Dates: start: 20160923, end: 20161226
  13. AMUCHINA [Concomitant]
     Route: 065
     Dates: start: 20161126
  14. OROKEN [Concomitant]
     Active Substance: CEFIXIME
     Indication: URINARY TRACT INFECTION
     Route: 065
     Dates: start: 20161228, end: 20170105
  15. INTERFERON BETA?1A [Suspect]
     Active Substance: INTERFERON BETA-1A
     Dosage: FREQUENCY AS PER PROTOCOL.?FOR WEEKS 3 AND 4: 22 MICROGRAM INJECTION 3 TIMES PER WEEK;?FOR THE 5TH W
     Route: 058
     Dates: end: 20131103
  16. OCRELIZUMAB. [Suspect]
     Active Substance: OCRELIZUMAB
     Indication: RELAPSING-REMITTING MULTIPLE SCLEROSIS
     Dosage: FREQUENCY AND DOSE AS PER PROTOCOL: DUAL INFUSION (300MG EACH) SEPARATED BY 14 DAYS FOR FIRST CYCLE,
     Route: 042
     Dates: start: 20140606
  17. FUMAFER [Concomitant]
     Active Substance: FERROUS FUMARATE
     Indication: ANAEMIA
     Route: 048
     Dates: start: 20130416
  18. MONURIL [Concomitant]
     Active Substance: FOSFOMYCIN SODIUM
     Indication: URINARY TRACT INFECTION
     Route: 065
     Dates: start: 20160922, end: 20160922
  19. FLUCONAZOLE. [Concomitant]
     Active Substance: FLUCONAZOLE
     Route: 065
     Dates: start: 20161203
  20. INTERFERON BETA?1A [Suspect]
     Active Substance: INTERFERON BETA-1A
     Indication: RELAPSING-REMITTING MULTIPLE SCLEROSIS
     Dosage: FREQUENCY AS PER PROTOCOL.?WEEK 1 AND 2
     Route: 058
     Dates: start: 20120706
  21. METHYLPREDNISOLONE. [Concomitant]
     Active Substance: METHYLPREDNISOLONE
     Indication: PREMEDICATION
     Dosage: SUBSEQUENT DOSES RECEIVED ON 20/JUL/2012, 21/DEC/2012, 07/JUN/2013, 21/NOV/2013, 06/JUN/2014, 20/JUN
     Route: 065
     Dates: start: 20120706
  22. METHYLPREDNISOLONE. [Concomitant]
     Active Substance: METHYLPREDNISOLONE
     Route: 042
     Dates: start: 20160306, end: 20160310
  23. IMIPENEM MONOHYDRATE [Concomitant]
     Indication: URINARY TRACT INFECTION
     Route: 042
     Dates: start: 20140206, end: 20140216
  24. CEFIXIME. [Concomitant]
     Active Substance: CEFIXIME
     Indication: URINARY TRACT INFECTION
     Route: 048
     Dates: start: 20160328, end: 20160404
  25. OFLOCET [Concomitant]
     Active Substance: OFLOXACIN
     Indication: URINARY TRACT INFECTION
     Route: 065
     Dates: start: 20160913, end: 20160921
  26. ERTAPENEM. [Concomitant]
     Active Substance: ERTAPENEM SODIUM
     Indication: URINARY TRACT INFECTION
     Route: 065
     Dates: start: 20161104, end: 20161125

REACTIONS (2)
  - Arthralgia [Recovered/Resolved]
  - Erythema nodosum [Recovered/Resolved]

NARRATIVE: CASE EVENT DATE: 20150712
